FAERS Safety Report 20331901 (Version 1)
Quarter: 2022Q1

REPORT INFORMATION
  Report Type: Spontaneous
  Country: US (occurrence: None)
  Receive Date: 20220113
  Receipt Date: 20220113
  Transmission Date: 20220424
  Serious: Yes (Hospitalization)
  Sender: FDA-Public Use
  Company Number: None

PATIENT
  Sex: Female
  Weight: 98 kg

DRUGS (3)
  1. PERTUZUMAB [Suspect]
     Active Substance: PERTUZUMAB
  2. TRASTUZUMAB (HERCEPTIN) [Concomitant]
  3. TAXOL [Concomitant]
     Active Substance: PACLITAXEL

REACTIONS (5)
  - Diarrhoea [None]
  - Asthenia [None]
  - Fatigue [None]
  - Decreased appetite [None]
  - Blood creatine increased [None]

NARRATIVE: CASE EVENT DATE: 20211213
